FAERS Safety Report 9471449 (Version 2)
Quarter: 2013Q3

REPORT INFORMATION
  Report Type: Spontaneous
  Country: US (occurrence: US)
  Receive Date: 20130822
  Receipt Date: 20130830
  Transmission Date: 20140515
  Serious: No
  Sender: FDA-Public Use
  Company Number: US-009507513-1308USA006201

PATIENT
  Sex: 0

DRUGS (1)
  1. ETONOGESTREL IMPLANT- UNKNOWN [Suspect]
     Dosage: 1 DF, UNK
     Route: 059

REACTIONS (2)
  - Incorrect product storage [Unknown]
  - No adverse event [Unknown]
